FAERS Safety Report 4390643-6 (Version None)
Quarter: 2004Q2

REPORT INFORMATION
  Report Type: 
  Country: None (occurrence: None)
  Receive Date: 20040630
  Receipt Date: 20040622
  Transmission Date: 20050107
  Serious: Yes (Death, Hospitalization, Other)
  Sender: FDA-Public Use
  Company Number: USA-2003-0009435

PATIENT
  Age: 48 Year
  Sex: Male
  Weight: 86.2 kg

DRUGS (16)
  1. OXYCONTIN [Suspect]
     Indication: PAIN
     Dosage: MG, SEE TEXT, ORAL; 20 MG; 80 MG
     Dates: end: 20030401
  2. SOMA [Suspect]
     Indication: MUSCLE SPASMS
     Dosage: MG, QID, ORAL
     Route: 048
     Dates: start: 19980101, end: 20030101
  3. MEPROBAMATE [Suspect]
  4. XANAX [Suspect]
     Dosage: 2 MD, TID, ORAL
     Route: 048
     Dates: start: 19990101, end: 20030101
  5. LORCET-HD [Suspect]
     Indication: PAIN
     Dosage: 1 TABLET, QID, ORAL
     Route: 048
  6. LORTAB [Concomitant]
  7. HALCION [Concomitant]
  8. AMBIEN [Concomitant]
  9. COLACE CAPSULES (DOCUSATE SODIUM) CAPSULE [Concomitant]
  10. PERI-COLACE 8.6 MG/50 MG (DOCUSATE SODIUM, SENNOSIDE A+B) TABLET [Concomitant]
  11. VICODIN [Concomitant]
  12. LEVAQUIN [Concomitant]
  13. LOVENOX [Concomitant]
  14. MORPHINE [Concomitant]
  15. RESTORIL [Concomitant]
  16. BACLOFEN [Concomitant]

REACTIONS (63)
  - ABDOMINAL PAIN [None]
  - ACCIDENT [None]
  - ACCIDENTAL OVERDOSE [None]
  - AGITATION [None]
  - ALCOHOL USE [None]
  - ANKLE FRACTURE [None]
  - ARTHRALGIA [None]
  - ASPARTATE AMINOTRANSFERASE INCREASED [None]
  - ASTHENIA [None]
  - BACK PAIN [None]
  - BASAL CELL CARCINOMA [None]
  - BLISTER [None]
  - BODY TEMPERATURE INCREASED [None]
  - CELLULITIS [None]
  - CLOSED HEAD INJURY [None]
  - COMMUNICATION DISORDER [None]
  - CONFUSIONAL STATE [None]
  - CONSTIPATION [None]
  - CONTUSION [None]
  - DEPRESSION [None]
  - DISORIENTATION [None]
  - DRUG DEPENDENCE [None]
  - DRUG EFFECT DECREASED [None]
  - DRUG TOXICITY [None]
  - DRUG WITHDRAWAL SYNDROME [None]
  - DYSARTHRIA [None]
  - ERECTILE DYSFUNCTION [None]
  - ERYTHEMA [None]
  - EXCORIATION [None]
  - FACIAL PARESIS [None]
  - FAILURE OF IMPLANT [None]
  - FALL [None]
  - FATIGUE [None]
  - FIBULA FRACTURE [None]
  - FOOT FRACTURE [None]
  - GINGIVAL BLEEDING [None]
  - HALLUCINATION [None]
  - HEADACHE [None]
  - HYPOAESTHESIA [None]
  - IMPAIRED HEALING [None]
  - INADEQUATE ANALGESIA [None]
  - INFECTION [None]
  - JOINT EFFUSION [None]
  - JOINT SWELLING [None]
  - KNEE ARTHROPLASTY [None]
  - LEGAL PROBLEM [None]
  - MEMORY IMPAIRMENT [None]
  - MULTIPLE DRUG OVERDOSE [None]
  - MUSCLE SPASMS [None]
  - NAUSEA [None]
  - OEDEMA PERIPHERAL [None]
  - PAIN IN EXTREMITY [None]
  - RESTLESSNESS [None]
  - ROAD TRAFFIC ACCIDENT [None]
  - SKIN LACERATION [None]
  - SOMNOLENCE [None]
  - SPEECH DISORDER [None]
  - SUBARACHNOID HAEMORRHAGE [None]
  - SUBDURAL HAEMORRHAGE [None]
  - TREATMENT NONCOMPLIANCE [None]
  - TREMOR [None]
  - WOUND [None]
  - WOUND SECRETION [None]
